FAERS Safety Report 10723639 (Version 1)
Quarter: 2015Q1

REPORT INFORMATION
  Report Type: Spontaneous
  Country: US (occurrence: None)
  Receive Date: 20150116
  Receipt Date: 20150116
  Transmission Date: 20150721
  Serious: Yes (Other)
  Sender: FDA-Public Use
  Company Number: None

PATIENT
  Age: 51 Year
  Sex: Male
  Weight: 78 kg

DRUGS (1)
  1. METHYLENE BLUE. [Suspect]
     Active Substance: METHYLENE BLUE
     Dosage: 10, ONCE, INTRAVENOUS
     Route: 042
     Dates: start: 20150114, end: 20150114

REACTIONS (1)
  - Product quality issue [None]

NARRATIVE: CASE EVENT DATE: 20150114
